FAERS Safety Report 8835618 (Version 4)
Quarter: 2012Q4

REPORT INFORMATION
  Report Type: 
  Country: SG (occurrence: SG)
  Receive Date: 20121011
  Receipt Date: 20121223
  Transmission Date: 20130627
  Serious: Yes (Hospitalization)
  Sender: FDA-Public Use
  Company Number: SG-JNJFOC-20121006399

PATIENT
  Age: 83 Year
  Sex: Female

DRUGS (5)
  1. XARELTO [Suspect]
     Indication: ATRIAL FIBRILLATION
     Route: 048
     Dates: start: 20120525, end: 20120929
  2. XARELTO [Suspect]
     Indication: CEREBROVASCULAR ACCIDENT PROPHYLAXIS
     Route: 048
     Dates: start: 20120525, end: 20120929
  3. TELMISARTAN [Concomitant]
     Route: 065
  4. SOTALOL [Concomitant]
     Route: 065
  5. ATORVASTATIN [Concomitant]
     Route: 065

REACTIONS (2)
  - Cerebrovascular accident [Unknown]
  - Hepatic enzyme increased [Recovered/Resolved]
